FAERS Safety Report 15461373 (Version 3)
Quarter: 2019Q1

REPORT INFORMATION
  Report Type: Report from Study
  Country: US (occurrence: US)
  Receive Date: 20181003
  Receipt Date: 20190110
  Transmission Date: 20190417
  Serious: Yes (Hospitalization)
  Sender: FDA-Public Use
  Company Number: US-OTSUKA-2018_032222

PATIENT
  Age: 53 Year
  Sex: Female

DRUGS (4)
  1. TOLVAPTAN [Suspect]
     Active Substance: TOLVAPTAN
     Indication: HYPONATRAEMIA
     Dosage: UNK
     Route: 065
     Dates: start: 20170224
  2. TOLVAPTAN [Suspect]
     Active Substance: TOLVAPTAN
     Dosage: 15 MG, QD
     Route: 048
     Dates: start: 201702
  3. TOLVAPTAN [Suspect]
     Active Substance: TOLVAPTAN
     Dosage: 30 MG, QD
     Route: 048
  4. TOLVAPTAN [Suspect]
     Active Substance: TOLVAPTAN
     Dosage: 45 MG, QD
     Route: 048

REACTIONS (4)
  - Hospitalisation [Not Recovered/Not Resolved]
  - Disease recurrence [Unknown]
  - Inability to afford medication [Unknown]
  - Incorrect product administration duration [Unknown]

NARRATIVE: CASE EVENT DATE: 20190102
